FAERS Safety Report 5307711-4 (Version None)
Quarter: 2007Q2

REPORT INFORMATION
  Report Type: 
  Country: None (occurrence: None)
  Receive Date: 20070418
  Receipt Date: 20070404
  Transmission Date: 20071010
  Serious: Yes (Other)
  Sender: FDA-Public Use
  Company Number: 012480

PATIENT
  Age: 54 Year
  Sex: Male
  Weight: 73.2 kg

DRUGS (4)
  1. CLARAVIS [Suspect]
     Indication: GLIOBLASTOMA MULTIFORME
     Dosage: 200 MG/DAY, ORAL
     Route: 048
     Dates: start: 20061020, end: 20070313
  2. TEMODAR [Concomitant]
  3. KEPPRA [Concomitant]
  4. ZOLOFT [Concomitant]

REACTIONS (2)
  - GLIOBLASTOMA MULTIFORME [None]
  - MALIGNANT NEOPLASM PROGRESSION [None]
